FAERS Safety Report 5690434-X (Version None)
Quarter: 2008Q2

REPORT INFORMATION
  Report Type: 
  Country: None (occurrence: None)
  Receive Date: 20080401
  Receipt Date: 20080320
  Transmission Date: 20081010
  Serious: Yes (Death, Hospitalization)
  Sender: FDA-Public Use
  Company Number: US-AVENTIS-200811293EU

PATIENT
  Age: 31 Year
  Sex: Female
  Weight: 73.8 kg

DRUGS (3)
  1. PSEUDOEPHEDRINE HYDROCHLORIDE [Suspect]
  2. NYQUIL [Concomitant]
     Dosage: DOSE: UNK
  3. LOESTRIN 1.5/30 [Concomitant]
     Dosage: DOSE: UNK

REACTIONS (2)
  - CARDIOMYOPATHY ACUTE [None]
  - HYPERTENSIVE CRISIS [None]
